FAERS Safety Report 4634973-9 (Version None)
Quarter: 2005Q2

REPORT INFORMATION
  Report Type: 
  Country: None (occurrence: None)
  Receive Date: 20050414
  Receipt Date: 20040112
  Transmission Date: 20051028
  Serious: Yes (Death, Other)
  Sender: FDA-Public Use
  Company Number: US-AMGEN-US063760

PATIENT
  Age: 50 Year
  Sex: Female

DRUGS (2)
  1. EPOGEN [Suspect]
     Indication: ANAEMIA OF MALIGNANT DISEASE
  2. RITUXIMAB [Concomitant]

REACTIONS (2)
  - APLASIA PURE RED CELL [None]
  - SEPSIS [None]
